FAERS Safety Report 4883900-8 (Version None)
Quarter: 2006Q1

REPORT INFORMATION
  Report Type: 
  Country: None (occurrence: None)
  Receive Date: 20060113
  Receipt Date: 20060103
  Transmission Date: 20060701
  Serious: Yes (Other)
  Sender: FDA-Public Use
  Company Number: HQWYE173004JAN06

PATIENT
  Age: 75 Year
  Sex: Male

DRUGS (6)
  1. CORDARONE [Suspect]
     Dosage: ORAL
     Route: 048
     Dates: start: 20020101, end: 20051212
  2. COVERSYL (PERINDOPRIL) [Concomitant]
  3. METOPROLOL SUCCINATE [Concomitant]
  4. ZOCOR [Concomitant]
  5. WARFARIN SODIUM [Concomitant]
  6. HJERTEMAGNYL (ACETYLSALICYLIC ACID/MAGNESIUM OXIDE HEAVY) [Concomitant]

REACTIONS (5)
  - DRY MOUTH [None]
  - DYSPHONIA [None]
  - HEADACHE [None]
  - HYPERTHYROIDISM [None]
  - WEIGHT DECREASED [None]
